FAERS Safety Report 6759490-1 (Version None)
Quarter: 2010Q2

REPORT INFORMATION
  Report Type: 
  Country: None (occurrence: None)
  Receive Date: 20100603
  Receipt Date: 20100525
  Transmission Date: 20101027
  Serious: Yes (Other)
  Sender: FDA-Public Use
  Company Number: 601813

PATIENT
  Age: 32 Year
  Sex: Male

DRUGS (19)
  1. CYTARABINE [Suspect]
     Indication: ACUTE MYELOID LEUKAEMIA
     Dates: start: 19980101
  2. CYTARABINE [Suspect]
     Indication: ACUTE MYELOID LEUKAEMIA
     Dates: start: 19991101
  3. CISPLATIN [Suspect]
     Indication: METASTASIS
     Dates: start: 19960101
  4. (BLEOMYCIN) [Suspect]
     Indication: METASTASIS
     Dates: start: 19960101
  5. ETOPOSIDE [Suspect]
     Indication: ACUTE MYELOID LEUKAEMIA
     Dates: start: 19960101
  6. ETOPOSIDE [Suspect]
     Indication: METASTASIS
     Dates: start: 19960101
  7. ETOPOSIDE [Suspect]
     Indication: ACUTE MYELOID LEUKAEMIA
     Dates: start: 19980101
  8. ETOPOSIDE [Suspect]
     Indication: METASTASIS
     Dates: start: 19980101
  9. DAUNORUBICIN HCL [Suspect]
     Indication: ACUTE MYELOID LEUKAEMIA
     Dates: start: 19980101
  10. CYCLOPHOSPHAMIDE [Suspect]
     Indication: ALLOGENIC BONE MARROW TRANSPLANTATION THERAPY
  11. PREDNISOLONE [Suspect]
     Indication: ACUTE GRAFT VERSUS HOST DISEASE
  12. CYCLOSPORINE [Suspect]
     Indication: ACUTE GRAFT VERSUS HOST DISEASE
     Dates: start: 19991201, end: 20030201
  13. CYCLOSPORINE [Suspect]
     Indication: CHRONIC GRAFT VERSUS HOST DISEASE
     Dates: start: 19991201, end: 20030201
  14. (FLUDARABINE) [Suspect]
     Indication: ACUTE MYELOID LEUKAEMIA
     Dates: start: 19991101
  15. (FLUDARABINE) [Suspect]
     Indication: STEM CELL TRANSPLANT
     Dates: start: 19991101
  16. (FLUDARABINE) [Suspect]
     Indication: ACUTE MYELOID LEUKAEMIA
     Dates: start: 19991201
  17. (FLUDARABINE) [Suspect]
     Indication: STEM CELL TRANSPLANT
     Dates: start: 19991201
  18. MELPHALAN HYDROCHLORIDE [Suspect]
     Indication: STEM CELL TRANSPLANT
     Dates: start: 20091201
  19. (THERAPEUTIC RADIOPHARMACEUTICALS) [Suspect]
     Indication: ALLOGENIC BONE MARROW TRANSPLANTATION THERAPY

REACTIONS (10)
  - ACUTE MYELOID LEUKAEMIA [None]
  - BONE MARROW TRANSPLANT [None]
  - CHRONIC GRAFT VERSUS HOST DISEASE [None]
  - GRAFT VERSUS HOST DISEASE [None]
  - IMMUNOSUPPRESSION [None]
  - NEOPLASM SKIN [None]
  - OESOPHAGEAL SQUAMOUS CELL CARCINOMA [None]
  - POROKERATOSIS [None]
  - STEM CELL TRANSPLANT [None]
  - SWEAT GLAND TUMOUR [None]
